FAERS Safety Report 8231154-7 (Version None)
Quarter: 2012Q1

REPORT INFORMATION
  Report Type: 
  Country: None (occurrence: None)
  Receive Date: 20120321
  Receipt Date: 20120309
  Transmission Date: 20120608
  Serious: Yes (Death, Hospitalization)
  Sender: FDA-Public Use
  Company Number: UTC-015820

PATIENT
  Age: 78 Year
  Sex: Male
  Weight: 65.45 kg

DRUGS (4)
  1. REMODULIN [Suspect]
     Indication: COR PULMONALE CHRONIC
     Dosage: .037- .048 UG/KG (1 IN 1 MIN), INTRAVENOUS
     Route: 042
     Dates: start: 20100601
  2. REMODULIN [Suspect]
     Indication: PULMONARY HYPERTENSION
     Dosage: .037- .048 UG/KG (1 IN 1 MIN), INTRAVENOUS
     Route: 042
     Dates: start: 20100601
  3. REMODULIN [Suspect]
     Indication: PULMONARY ARTERIAL HYPERTENSION
     Dosage: .037- .048 UG/KG (1 IN 1 MIN), INTRAVENOUS
     Route: 042
     Dates: start: 20100601
  4. DIURETICS (DIURETICS) [Concomitant]

REACTIONS (6)
  - PULMONARY HYPERTENSION [None]
  - OVERDOSE [None]
  - HYPOTENSION [None]
  - SEPSIS [None]
  - RENAL FAILURE [None]
  - DIALYSIS [None]
